FAERS Safety Report 24985829 (Version 1)
Quarter: 2025Q1

REPORT INFORMATION
  Report Type: Report from Study
  Country: CA (occurrence: CA)
  Receive Date: 20250219
  Receipt Date: 20250219
  Transmission Date: 20250409
  Serious: Yes (Hospitalization)
  Sender: ROCHE
  Company Number: CA-ROCHE-10000205794

PATIENT
  Sex: Female
  Weight: 0 kg

DRUGS (4)
  1. ERIVEDGE [Suspect]
     Active Substance: VISMODEGIB
     Indication: Basal cell naevus syndrome
     Dosage: DRUG DOSE FIRST ADMINISTERED IS 150 MG MILLIGRAM(S)
     Route: 048
     Dates: start: 20210608, end: 2022
  2. ERIVEDGE [Suspect]
     Active Substance: VISMODEGIB
     Dosage: DRUG DOSE FIRST ADMINISTERED IS 150 MG MILLIGRAM(S)
     Route: 048
     Dates: start: 2022, end: 2022
  3. ERIVEDGE [Suspect]
     Active Substance: VISMODEGIB
     Dosage: DRUG DOSE FIRST ADMINISTERED IS 150 MG MILLIGRAM(S)
     Route: 048
     Dates: start: 2022
  4. PANTOPRAZOLE SODIUM [Concomitant]
     Active Substance: PANTOPRAZOLE SODIUM

REACTIONS (2)
  - Abdominal pain upper [Unknown]
  - Sarcoma uterus [Unknown]
